FAERS Safety Report 8947161 (Version 1)
Quarter: 2012Q4

REPORT INFORMATION
  Report Type: 
  Country: US (occurrence: US)
  Receive Date: 20121205
  Receipt Date: 20121205
  Transmission Date: 20130627
  Serious: No
  Sender: FDA-Public Use
  Company Number: US-PFIZER INC-2012302492

PATIENT
  Age: 53 Year
  Sex: Male

DRUGS (1)
  1. ZOLOFT [Suspect]
     Dosage: 100 mg, 1x/day

REACTIONS (3)
  - Accident [Unknown]
  - Injury [Unknown]
  - Muscle strain [Unknown]
